FAERS Safety Report 5827043-5 (Version None)
Quarter: 2008Q3

REPORT INFORMATION
  Report Type: 
  Country: None (occurrence: None)
  Receive Date: 20080730
  Receipt Date: 20080723
  Transmission Date: 20090109
  Serious: Yes (Other)
  Sender: FDA-Public Use
  Company Number: A0739103A

PATIENT
  Age: 72 Year
  Sex: Female

DRUGS (2)
  1. AVANDIA [Suspect]
     Route: 048
     Dates: end: 20070408
  2. ADVAIR DISKUS 100/50 [Concomitant]

REACTIONS (4)
  - HALLUCINATION [None]
  - NAUSEA [None]
  - VERTIGO [None]
  - VOMITING [None]
